FAERS Safety Report 14617473 (Version 2)
Quarter: 2018Q2

REPORT INFORMATION
  Report Type: Spontaneous
  Country: DE (occurrence: DE)
  Receive Date: 20180309
  Receipt Date: 20180531
  Transmission Date: 20180711
  Serious: No
  Sender: FDA-Public Use
  Company Number: PHHY2018DE039787

PATIENT
  Age: 57 Year
  Sex: Female
  Weight: 67 kg

DRUGS (6)
  1. METOHEXAL SUCC [Suspect]
     Active Substance: METOPROLOL SUCCINATE
     Indication: HYPERTENSION
     Dosage: 47.5 MG, UNK
     Route: 048
     Dates: start: 2013
  2. METOHEXAL SUCC [Suspect]
     Active Substance: METOPROLOL SUCCINATE
     Indication: TACHYCARDIA
     Dosage: 0.5 DF, QD
     Route: 048
     Dates: start: 20180129, end: 20180303
  3. NOVAMINSULFON [Concomitant]
     Active Substance: METAMIZOLE
     Indication: MIGRAINE
     Dosage: UNK UNK, PRN (APPLICATION ON DEMAND)
     Route: 065
  4. CANDESARTAN. [Concomitant]
     Active Substance: CANDESARTAN
     Indication: PRODUCT USED FOR UNKNOWN INDICATION
     Dosage: LONG TERM USE
     Route: 065
  5. TRIPTAN [Concomitant]
     Indication: MIGRAINE
     Dosage: UNK UNK, PRN
     Route: 065
  6. GYNOKADIN [Concomitant]
     Active Substance: ESTRADIOL
     Indication: PRODUCT USED FOR UNKNOWN INDICATION
     Dosage: LONE TERM USE
     Route: 065

REACTIONS (4)
  - Product quality issue [Unknown]
  - Palpitations [Recovered/Resolved]
  - Blood pressure increased [Recovered/Resolved]
  - Drug ineffective [Recovered/Resolved]

NARRATIVE: CASE EVENT DATE: 20180129
